FAERS Safety Report 25712924 (Version 1)
Quarter: 2025Q3

REPORT INFORMATION
  Report Type: Report from Study
  Country: US (occurrence: US)
  Receive Date: 20250821
  Receipt Date: 20250821
  Transmission Date: 20251021
  Serious: Yes (Other)
  Sender: ABBVIE
  Company Number: US-ABBVIE-6423757

PATIENT
  Age: 69 Year
  Sex: Female

DRUGS (1)
  1. LINZESS [Suspect]
     Active Substance: LINACLOTIDE
     Indication: Product used for unknown indication
     Route: 048

REACTIONS (4)
  - Hip surgery [Unknown]
  - Mobility decreased [Unknown]
  - Gait disturbance [Unknown]
  - Amputation [Unknown]

NARRATIVE: CASE EVENT DATE: 20210101
